FAERS Safety Report 5719585-8 (Version None)
Quarter: 2008Q2

REPORT INFORMATION
  Report Type: 
  Country: None (occurrence: None)
  Receive Date: 20080423
  Receipt Date: 20070423
  Transmission Date: 20081010
  Serious: Yes (Death, Hospitalization)
  Sender: FDA-Public Use
  Company Number: 238961

PATIENT
  Age: 75 Year
  Sex: Male

DRUGS (6)
  1. AVASTIN [Suspect]
     Indication: COLORECTAL CANCER METASTATIC
     Dates: start: 20070126
  2. XELODA [Concomitant]
  3. OXALIPLATIN [Concomitant]
  4. AVODART [Concomitant]
  5. FLOMAX [Concomitant]
  6. METOPROLOL TARTRATE [Concomitant]

REACTIONS (1)
  - GASTROINTESTINAL PERFORATION [None]
